FAERS Safety Report 7428868-5 (Version None)
Quarter: 2011Q2

REPORT INFORMATION
  Report Type: 
  Country: None (occurrence: None)
  Receive Date: 20110413
  Receipt Date: 20110329
  Transmission Date: 20111010
  Serious: Yes (Hospitalization)
  Sender: FDA-Public Use
  Company Number: 027043

PATIENT
  Sex: Male
  Weight: 75 kg

DRUGS (39)
  1. PREDNISOLON /00016201/ [Concomitant]
  2. INVANZ [Concomitant]
  3. PROPOFOL [Concomitant]
  4. FUNGIZID [Concomitant]
  5. VANCOMYCIN [Concomitant]
  6. THIAMINE HCL [Concomitant]
  7. METFORMIN [Concomitant]
  8. SCOPODERM /00008701/ [Concomitant]
  9. PCM [Concomitant]
  10. LACOSAMIDE [Suspect]
     Indication: EPILEPSY
     Dosage: 50 MG QD, EVENING ORAL; 100 MG BID, MORNING, EVENING  ORAL; 100 MG QD ORAL
     Route: 048
     Dates: start: 20101025, end: 20101025
  11. LACOSAMIDE [Suspect]
     Indication: EPILEPSY
     Dosage: 50 MG QD, EVENING ORAL; 100 MG BID, MORNING, EVENING  ORAL; 100 MG QD ORAL
     Route: 048
     Dates: start: 20101001, end: 20110106
  12. LACOSAMIDE [Suspect]
     Indication: EPILEPSY
     Dosage: 50 MG QD, EVENING ORAL; 100 MG BID, MORNING, EVENING  ORAL; 100 MG QD ORAL
     Route: 048
     Dates: start: 20101026
  13. PERENTEROL [Concomitant]
  14. NEXIUM [Concomitant]
  15. ATACAND HCT [Concomitant]
  16. SODIUM CHLORIDE [Concomitant]
  17. HEPARIN SODIUM [Concomitant]
  18. ACETYLCYSTEINE [Concomitant]
  19. SIOFOR [Concomitant]
  20. FLUTICASONE PROPIONATE [Concomitant]
  21. FOSAMAX [Concomitant]
  22. POTASSIUM [Concomitant]
  23. TAVOR /00273201/ [Concomitant]
  24. LEVOFLOXACIN [Concomitant]
  25. KEPPRA [Concomitant]
  26. FENTANYL [Concomitant]
  27. HYDROCHLOROTHIAZIDE [Concomitant]
  28. SPIRIVA [Concomitant]
  29. INSULINE RAPITARD [Concomitant]
  30. SEROQUEL [Concomitant]
  31. CLONT /00012501/ [Concomitant]
  32. SULTANOL /01394501/ [Concomitant]
  33. EBRANTIL /00631801/ [Concomitant]
  34. BRICANYL [Concomitant]
  35. LASIX [Concomitant]
  36. MCP /00041901/ [Concomitant]
  37. HEPARIN [Concomitant]
  38. AMLODIPINE BESYLATE [Concomitant]
  39. KALIUM /000314302/ [Concomitant]

REACTIONS (20)
  - GENERAL PHYSICAL HEALTH DETERIORATION [None]
  - ACUTE PRERENAL FAILURE [None]
  - BLOOD SODIUM DECREASED [None]
  - PSYCHOTIC DISORDER [None]
  - FALL [None]
  - ABASIA [None]
  - DIABETES MELLITUS [None]
  - HAEMOGLOBIN DECREASED [None]
  - DECREASED VIBRATORY SENSE [None]
  - FATIGUE [None]
  - GASTRITIS [None]
  - CLOSTRIDIUM DIFFICILE COLITIS [None]
  - DISORIENTATION [None]
  - PARANOIA [None]
  - COGNITIVE DISORDER [None]
  - PNEUMONIA ASPIRATION [None]
  - URINE LEUKOCYTE ESTERASE POSITIVE [None]
  - DEHYDRATION [None]
  - AGITATION [None]
  - DYSSTASIA [None]
